FAERS Safety Report 10223678 (Version 1)
Quarter: 2014Q2

REPORT INFORMATION
  Report Type: Spontaneous
  Country: US (occurrence: US)
  Receive Date: 20140609
  Receipt Date: 20140609
  Transmission Date: 20141212
  Serious: No
  Sender: FDA-Public Use
  Company Number: US-009507513-1405USA015309

PATIENT
  Age: 58 Year
  Sex: Male

DRUGS (6)
  1. PEGINTRON [Suspect]
     Indication: HEPATITIS C
     Dosage: 150 MCG/0.5 ML/ ^ONCE WEEKLY ON WEDNESDAY^
     Dates: start: 20140514
  2. PRILOSEC [Concomitant]
     Dosage: UNK
  3. VICODIN [Concomitant]
     Dosage: UNK
  4. KLONOPIN [Concomitant]
     Dosage: UNK
  5. SYNTHROID [Concomitant]
     Dosage: UNK
  6. GABAPIN [Concomitant]
     Dosage: UNK

REACTIONS (3)
  - Nausea [Recovered/Resolved]
  - Accidental exposure to product [Unknown]
  - Drug administration error [Unknown]
